FAERS Safety Report 8128510-4 (Version None)
Quarter: 2012Q1

REPORT INFORMATION
  Report Type: 
  Country: None (occurrence: None)
  Receive Date: 20120210
  Receipt Date: 20120207
  Transmission Date: 20120608
  Serious: Yes (Death)
  Sender: FDA-Public Use
  Company Number: KP-ROXANE LABORATORIES, INC.-2012-RO-00619RO

PATIENT
  Age: 59 Year
  Sex: Female

DRUGS (8)
  1. PREDNISOLONE [Suspect]
     Indication: LYMPHOMA
     Dosage: 300 MG
     Route: 048
  2. METHOTREXATE [Suspect]
     Route: 042
  3. CYTARABINE [Suspect]
     Indication: LYMPHOMA
     Route: 037
  4. HYDROCORTISONE [Suspect]
     Indication: LYMPHOMA
     Route: 037
  5. IFOSFAMIDE [Suspect]
     Indication: LYMPHOMA
     Route: 042
  6. METHOTREXATE [Suspect]
     Indication: LYMPHOMA
     Route: 037
  7. ETOPOSIDE [Suspect]
     Indication: LYMPHOMA
     Route: 042
  8. MESNA [Suspect]
     Indication: LYMPHOMA
     Route: 042

REACTIONS (1)
  - LEUKOENCEPHALOPATHY [None]
